FAERS Safety Report 24243636 (Version 1)
Quarter: 2024Q3

REPORT INFORMATION
  Report Type: Spontaneous
  Country: CN (occurrence: CN)
  Receive Date: 20240823
  Receipt Date: 20240823
  Transmission Date: 20241017
  Serious: Yes (Hospitalization, Other)
  Sender: GLAXOSMITHKLINE
  Company Number: CN-GLAXOSMITHKLINE-CN2024APC103008

PATIENT

DRUGS (1)
  1. LAMOTRIGINE [Suspect]
     Active Substance: LAMOTRIGINE
     Indication: Epilepsy
     Dosage: 0.5 DF, BID
     Route: 048
     Dates: start: 20240801, end: 20240808

REACTIONS (7)
  - Dermatitis exfoliative [Recovering/Resolving]
  - Rash [Recovering/Resolving]
  - Flushing [Recovering/Resolving]
  - Swelling face [Recovering/Resolving]
  - Pyrexia [Recovering/Resolving]
  - Rash erythematous [Recovering/Resolving]
  - Purulent discharge [Recovering/Resolving]

NARRATIVE: CASE EVENT DATE: 20240808
